FAERS Safety Report 6106281-0 (Version None)
Quarter: 2009Q1

REPORT INFORMATION
  Report Type: 
  Country: None (occurrence: None)
  Receive Date: 20090303
  Receipt Date: 20090216
  Transmission Date: 20090719
  Serious: Yes (Other)
  Sender: FDA-Public Use
  Company Number: 2009S1002851

PATIENT
  Age: 5 Decade
  Sex: Female
  Weight: 74.8435 kg

DRUGS (2)
  1. SPIRONOLACTONE AND HYDROCHLOROTHIAZIDE [Suspect]
     Indication: HYPERTENSION
     Dosage: 25 MG; DAILY; ORAL
     Route: 048
     Dates: end: 20060101
  2. SPIRONOLACTONE AND HYDROCHLOROTHIAZIDE [Suspect]
     Indication: HYPERTENSION
     Dosage: 25 MG;DAILY; ORAL
     Route: 048
     Dates: end: 20060101

REACTIONS (4)
  - ABDOMINAL NEOPLASM [None]
  - ALOPECIA [None]
  - LIPOMA [None]
  - NEOPLASM MALIGNANT [None]
